FAERS Safety Report 8909131 (Version 1)
Quarter: 2012Q4

REPORT INFORMATION
  Report Type: 
  Country: PT (occurrence: PT)
  Receive Date: 20121114
  Receipt Date: 20121114
  Transmission Date: 20130627
  Serious: Yes (Other)
  Sender: FDA-Public Use
  Company Number: PT-PFIZER INC-2012280814

PATIENT
  Age: 32 Year
  Sex: Female

DRUGS (1)
  1. TAZOBAC [Suspect]
     Dosage: 4.5 g, UNK
     Dates: start: 2011, end: 2011

REACTIONS (7)
  - Wheezing [Recovered/Resolved]
  - Urticaria [Recovered/Resolved]
  - Occupational exposure to product [Recovered/Resolved]
  - Manipulation [Recovered/Resolved]
  - Dyspnoea [Recovered/Resolved]
  - Cough [Recovered/Resolved]
  - Face oedema [Recovered/Resolved]
